FAERS Safety Report 16893085 (Version 2)
Quarter: 2019Q4

REPORT INFORMATION
  Report Type: Spontaneous
  Country: NL (occurrence: NL)
  Receive Date: 20191008
  Receipt Date: 20191218
  Transmission Date: 20200122
  Serious: Yes (Other)
  Sender: FDA-Public Use
  Company Number: NL-TEVA-2019-NL-1118134

PATIENT
  Age: 68 Year
  Sex: Female

DRUGS (1)
  1. ALENDRONINEZUUR 70MG [Suspect]
     Active Substance: ALENDRONIC ACID
     Indication: OSTEOPOROSIS
     Dosage: 1XPER WEEK 1 70 MG
     Dates: start: 201504, end: 201904

REACTIONS (1)
  - Gastrooesophageal cancer [Unknown]

NARRATIVE: CASE EVENT DATE: 201906
